FAERS Safety Report 18472408 (Version 1)
Quarter: 2020Q4

REPORT INFORMATION
  Report Type: Spontaneous
  Country: JP (occurrence: JP)
  Receive Date: 20201106
  Receipt Date: 20201106
  Transmission Date: 20210114
  Serious: Yes (Other)
  Sender: FDA-Public Use
  Company Number: JP-SUN PHARMACEUTICAL INDUSTRIES LTD-2020R1-266886

PATIENT
  Age: 70 Year
  Sex: Female

DRUGS (4)
  1. DOCETAXEL. [Suspect]
     Active Substance: DOCETAXEL
     Indication: RADIOTHERAPY
     Dosage: 4 WEEKS AFTER INITIAL TREATMENT AT RATE (1.5 ML/MIN)
     Route: 013
  2. NEDAPLATIN [Suspect]
     Active Substance: NEDAPLATIN
     Indication: NEOPLASM MALIGNANT
     Dosage: UNK (80 MG/M2) 3.0 ML/MIN
     Route: 013
  3. NEDAPLATIN [Suspect]
     Active Substance: NEDAPLATIN
     Indication: RADIOTHERAPY
     Dosage: 4 WEEKS AFTER INITIAL TREATMENT AT RATE (1.5 ML/MIN)
     Route: 013
  4. DOCETAXEL. [Suspect]
     Active Substance: DOCETAXEL
     Indication: NEOPLASM MALIGNANT
     Dosage: UNK (60 MG/M2)3.0 ML/MIN
     Route: 013

REACTIONS (1)
  - Cerebral haemorrhage [Unknown]
